FAERS Safety Report 4958684-5 (Version None)
Quarter: 2006Q1

REPORT INFORMATION
  Report Type: 
  Country: None (occurrence: None)
  Receive Date: 20060330
  Receipt Date: 20060323
  Transmission Date: 20060701
  Serious: Yes (Hospitalization)
  Sender: FDA-Public Use
  Company Number: US-MERCK-0603USA03893

PATIENT
  Age: 95 Year
  Sex: Male

DRUGS (11)
  1. VYTORIN [Suspect]
     Indication: BLOOD CHOLESTEROL INCREASED
     Route: 048
     Dates: start: 20060216
  2. EXELON [Concomitant]
     Route: 065
  3. AMENIDE [Concomitant]
     Route: 065
  4. TOPROL-XL [Concomitant]
     Route: 065
  5. PROTONIX [Concomitant]
     Route: 065
  6. LEVOXYL [Concomitant]
     Route: 065
  7. AGGRENOX [Concomitant]
     Route: 065
  8. ZOLOFT [Concomitant]
     Route: 065
  9. ATIVAN [Concomitant]
     Route: 065
  10. FLOMAX (MORNIFLUMATE) [Concomitant]
     Route: 065
  11. NORVASC [Concomitant]
     Route: 065

REACTIONS (3)
  - ASTHENIA [None]
  - GASTROOESOPHAGEAL REFLUX DISEASE [None]
  - MUSCULAR WEAKNESS [None]
